FAERS Safety Report 6286769-2 (Version None)
Quarter: 2009Q3

REPORT INFORMATION
  Report Type: 
  Country: None (occurrence: None)
  Receive Date: 20090728
  Receipt Date: 20090715
  Transmission Date: 20100115
  Serious: Yes (Hospitalization)
  Sender: FDA-Public Use
  Company Number: CH-PFIZER INC-2006008127

PATIENT
  Age: 28 Year

DRUGS (2)
  1. EPIRUBICIN HCL [Suspect]
     Indication: BREAST CANCER
     Dosage: 170 MG, UNK
     Dates: start: 20051121, end: 20060103
  2. TAXOTERE [Suspect]
     Indication: BREAST CANCER
     Dosage: 140 MG
     Dates: start: 20050919, end: 20060103

REACTIONS (2)
  - CHEST PAIN [None]
  - DYSPNOEA [None]
